FAERS Safety Report 8852049 (Version 1)
Quarter: 2012Q4

REPORT INFORMATION
  Report Type: 
  Country: US (occurrence: US)
  Receive Date: 20121022
  Receipt Date: 20121022
  Transmission Date: 20130627
  Serious: Yes (Other)
  Sender: FDA-Public Use
  Company Number: US-SANOFI-AVENTIS-2012SA076259

PATIENT
  Age: 48 Year
  Sex: Female

DRUGS (4)
  1. PLAVIX [Suspect]
     Indication: STENT INSERTION NOS
     Route: 065
  2. HUMIRA [Suspect]
     Indication: PSORIASIS
     Route: 065
     Dates: start: 2008
  3. DIVALPROEX SODIUM [Concomitant]
  4. LYRICA [Concomitant]

REACTIONS (8)
  - Systemic lupus erythematosus [Unknown]
  - Unwanted awareness during anaesthesia [Recovered/Resolved]
  - Spinal disorder [Unknown]
  - Haemorrhage [Unknown]
  - Abdominal pain upper [Recovered/Resolved]
  - Back pain [Unknown]
  - Arthritis reactive [Recovered/Resolved]
  - Localised infection [Recovered/Resolved]
